FAERS Safety Report 9149297 (Version 1)
Quarter: 2013Q1

REPORT INFORMATION
  Report Type: Spontaneous
  Country: US (occurrence: US)
  Receive Date: 20130308
  Receipt Date: 20130308
  Transmission Date: 20140127
  Serious: No
  Sender: FDA-Public Use
  Company Number: US-PFIZER INC-2013075486

PATIENT
  Age: 12 Year
  Sex: Male
  Weight: 36.3 kg

DRUGS (2)
  1. GENOTROPIN [Suspect]
     Indication: GROWTH HORMONE DEFICIENCY
     Dosage: 3.6 MG, 1X/DAY (EVERY DAY)
     Route: 058
  2. FOCALIN [Concomitant]
     Dosage: 2.5 MG, UNK

REACTIONS (2)
  - Product quality issue [Unknown]
  - Injury [Unknown]
